FAERS Safety Report 7492130-5 (Version None)
Quarter: 2011Q2

REPORT INFORMATION
  Report Type: 
  Country: None (occurrence: None)
  Receive Date: 20110519
  Receipt Date: 20110505
  Transmission Date: 20111010
  Serious: Yes (Other)
  Sender: FDA-Public Use
  Company Number: US-JNJFOC-20110301183

PATIENT

DRUGS (3)
  1. REMICADE [Suspect]
     Indication: DRUG EXPOSURE DURING PREGNANCY
     Dosage: 21 WEEKS GESTATIONAL AGE
     Route: 015
     Dates: start: 20101115
  2. REMICADE [Suspect]
     Dosage: 15 WEEKS GESTATIONAL AGE
     Route: 015
     Dates: start: 20101004
  3. REMICADE [Suspect]
     Dosage: 27 WEEKS GESTATIONAL AGE
     Route: 015
     Dates: start: 20101227

REACTIONS (2)
  - SMALL FOR DATES BABY [None]
  - PREMATURE BABY [None]
